FAERS Safety Report 5356428-9 (Version None)
Quarter: 2007Q2

REPORT INFORMATION
  Report Type: 
  Country: None (occurrence: None)
  Receive Date: 20070611
  Receipt Date: 20070530
  Transmission Date: 20071010
  Serious: Yes (Other)
  Sender: FDA-Public Use
  Company Number: 07H-066-0312681-00

PATIENT
  Age: 21 Day
  Sex: Female
  Weight: 0.82 kg

DRUGS (5)
  1. VANCOMYCIN HYDROCHLORIDE [Suspect]
     Indication: URINARY TRACT INFECTION ENTEROCOCCAL
     Dosage: OVER 1 HR EVERY 8-24, INTRAVENOUS
     Route: 042
  2. AMIKACIN [Suspect]
     Indication: URINARY TRACT INFECTION ENTEROCOCCAL
     Dosage: FOR 30 MIN EVER 12-48 HR, INTRAVENOUS
     Route: 042
  3. NETILMICIN SULFATE [Suspect]
     Indication: INFECTION
     Dosage: FOR 30 MIN EVERY 12-48 HRS, INTRAVENOUS
     Route: 042
  4. MILK FORMULA (MILK SUBSTITUTES) [Concomitant]
  5. PENICILLIN [Concomitant]

REACTIONS (5)
  - DRUG INTERACTION [None]
  - ELECTROLYTE IMBALANCE [None]
  - NEPHROCALCINOSIS [None]
  - NEPHROPATHY TOXIC [None]
  - RENAL TUBULAR DISORDER [None]
